FAERS Safety Report 5687235-5 (Version None)
Quarter: 2008Q1

REPORT INFORMATION
  Report Type: 
  Country: None (occurrence: None)
  Receive Date: 20080328
  Receipt Date: 20070913
  Transmission Date: 20080703
  Serious: Yes (Other)
  Sender: FDA-Public Use
  Company Number: US-BAYER-US-2007-013626

PATIENT
  Age: 38 Year
  Sex: Female

DRUGS (10)
  1. MIRENA [Suspect]
     Route: 015
     Dates: start: 20040201, end: 20070403
  2. CELEXA [Concomitant]
  3. CRESTOR [Concomitant]
  4. METFORMIN HCL [Concomitant]
  5. VALTREX [Concomitant]
  6. LISINOPRIL [Concomitant]
  7. GLYBURIDE [Concomitant]
  8. GEMFIBROZIL [Concomitant]
  9. RANITIDINE [Concomitant]
  10. VITAMINS [Concomitant]

REACTIONS (3)
  - IUCD COMPLICATION [None]
  - METRORRHAGIA [None]
  - PAIN [None]
